FAERS Safety Report 25289836 (Version 4)
Quarter: 2025Q2

REPORT INFORMATION
  Report Type: Spontaneous
  Country: US (occurrence: US)
  Receive Date: 20250509
  Receipt Date: 20250603
  Transmission Date: 20250716
  Serious: Yes (Other)
  Sender: PFIZER
  Company Number: US-PFIZER INC-202500005886

PATIENT
  Age: 36 Year
  Sex: Female

DRUGS (4)
  1. XELJANZ [Suspect]
     Active Substance: TOFACITINIB CITRATE
     Indication: Crohn^s disease
     Dosage: 10MG BID
     Route: 048
  2. XELJANZ [Suspect]
     Active Substance: TOFACITINIB CITRATE
     Indication: Pyoderma
  3. VITAMIN B12 [Suspect]
     Active Substance: CYANOCOBALAMIN
  4. HUMIRA [Suspect]
     Active Substance: ADALIMUMAB
     Dosage: UNK UNK, WEEKLY
     Dates: start: 202401

REACTIONS (8)
  - Gestational diabetes [Unknown]
  - Hernia repair [Unknown]
  - Illness [Unknown]
  - Haemorrhage [Not Recovered/Not Resolved]
  - Insomnia [Unknown]
  - Abdominal distension [Unknown]
  - Maternal exposure during pregnancy [Unknown]
  - Off label use [Unknown]
